FAERS Safety Report 4732383-7 (Version None)
Quarter: 2005Q3

REPORT INFORMATION
  Report Type: 
  Country: None (occurrence: None)
  Receive Date: 20050721
  Receipt Date: 20050523
  Transmission Date: 20060218
  Serious: No
  Sender: FDA-Public Use
  Company Number: 2005SP000894

PATIENT
  Age: 53 Year
  Sex: Female
  Weight: 104.3273 kg

DRUGS (1)
  1. LUNESTA [Suspect]
     Dosage: UNKNOWN;HS;ORAL
     Route: 048
     Dates: start: 20050101

REACTIONS (1)
  - DYSGEUSIA [None]
